FAERS Safety Report 17799659 (Version 1)
Quarter: 2020Q2

REPORT INFORMATION
  Report Type: Spontaneous
  Country: BR (occurrence: BR)
  Receive Date: 20200518
  Receipt Date: 20200518
  Transmission Date: 20200714
  Serious: Yes (Other)
  Sender: FDA-Public Use
  Company Number: BR-ASTELLAS-2020US013616

PATIENT
  Age: 71 Year
  Sex: Female

DRUGS (4)
  1. MYRBETRIQ [Suspect]
     Active Substance: MIRABEGRON
     Indication: URINARY INCONTINENCE
     Route: 048
     Dates: start: 20200409
  2. MYRBETRIQ [Suspect]
     Active Substance: MIRABEGRON
     Indication: URINARY TRACT PAIN
     Route: 050
     Dates: end: 20200509
  3. SOLIFENACIN [Suspect]
     Active Substance: SOLIFENACIN
     Indication: URINARY TRACT PAIN
     Dosage: UNK UNK, UNKNOWN FREQ.
     Route: 050
     Dates: start: 2019
  4. SOLIFENACIN [Suspect]
     Active Substance: SOLIFENACIN
     Indication: URINARY INCONTINENCE
     Dosage: UNK UNK, UNKNOWN FREQ.
     Route: 048
     Dates: start: 2019

REACTIONS (5)
  - Dysphagia [Unknown]
  - Product use in unapproved indication [Unknown]
  - Foreign body in gastrointestinal tract [Unknown]
  - Bladder cyst [Unknown]
  - Incorrect route of product administration [Unknown]
